FAERS Safety Report 14928196 (Version 3)
Quarter: 2018Q3

REPORT INFORMATION
  Report Type: Report from Study
  Country: DE (occurrence: DE)
  Receive Date: 20180523
  Receipt Date: 20180809
  Transmission Date: 20181010
  Serious: Yes (Other)
  Sender: FDA-Public Use
  Company Number: DE-PFIZER INC-2018169125

PATIENT
  Age: 8 Year

DRUGS (4)
  1. HUMIRA [Suspect]
     Active Substance: ADALIMUMAB
     Indication: JUVENILE IDIOPATHIC ARTHRITIS
     Dosage: 20 MG, CYCLIC (EVERY 2 WEEKS)
     Route: 058
     Dates: start: 20160913, end: 201802
  2. HUMIRA [Suspect]
     Active Substance: ADALIMUMAB
     Dosage: 20 MG, CYCLIC (EVERY 2 WEEKS)
     Route: 058
     Dates: start: 201802, end: 201803
  3. METHOTREXATE SODIUM. [Suspect]
     Active Substance: METHOTREXATE SODIUM
     Dosage: 10 MG, WEEKLY
     Dates: start: 20160913
  4. FOLIC ACID. [Concomitant]
     Active Substance: FOLIC ACID
     Indication: PRODUCT USED FOR UNKNOWN INDICATION
     Dosage: UNK
     Dates: start: 20160910

REACTIONS (3)
  - Uveitis [Not Recovered/Not Resolved]
  - Febrile infection [Recovered/Resolved]
  - Drug specific antibody [Unknown]

NARRATIVE: CASE EVENT DATE: 20180201
